FAERS Safety Report 5106613-6 (Version None)
Quarter: 2006Q3

REPORT INFORMATION
  Report Type: 
  Country: None (occurrence: None)
  Receive Date: 20060918
  Receipt Date: 20060830
  Transmission Date: 20061208
  Serious: Yes (Hospitalization)
  Sender: FDA-Public Use
  Company Number: PHEH2006US11158

PATIENT
  Age: 55 Year
  Sex: Female

DRUGS (1)
  1. COMBIPATCH [Suspect]
     Indication: HORMONE REPLACEMENT THERAPY
     Dosage: 0.05/0.25 MG/DAY, QW2
     Route: 062
     Dates: start: 20030101

REACTIONS (5)
  - ANKLE FRACTURE [None]
  - CRYING [None]
  - FALL [None]
  - HOT FLUSH [None]
  - NIGHT SWEATS [None]
